FAERS Safety Report 6504453-4 (Version None)
Quarter: 2009Q4

REPORT INFORMATION
  Report Type: 
  Country: None (occurrence: None)
  Receive Date: 20091215
  Receipt Date: 20091130
  Transmission Date: 20100525
  Serious: Yes (Other)
  Sender: FDA-Public Use
  Company Number: AUR-APL-2009-01461

PATIENT
  Age: 66 Year
  Sex: Male
  Weight: 61 kg

DRUGS (9)
  1. SIMVASTATIN [Suspect]
     Indication: HIGH DENSITY LIPOPROTEIN DECREASED
     Dosage: 80MG - DAILY
     Dates: start: 20090629
  2. ATORVASTATIN CALCIUM FILM-COATED TABLET [Suspect]
     Indication: HIGH DENSITY LIPOPROTEIN DECREASED
     Dates: start: 20090419, end: 20090628
  3. FUROSEMIDE [Suspect]
     Indication: FLUID RETENTION
     Dosage: 30MG - DAILY
     Dates: start: 20090419
  4. FUROSEMIDE [Suspect]
     Indication: OEDEMA PERIPHERAL
     Dosage: 30MG - DAILY
     Dates: start: 20090419
  5. COREG [Concomitant]
  6. LISINOPRIL [Concomitant]
  7. ASPIRIN [Concomitant]
  8. PROVIGIL [Concomitant]
  9. BETASERON [Concomitant]

REACTIONS (8)
  - ARTHRALGIA [None]
  - ECONOMIC PROBLEM [None]
  - KIDNEY INFECTION [None]
  - LABORATORY TEST ABNORMAL [None]
  - MUSCLE SPASMS [None]
  - MYALGIA [None]
  - THYROID FUNCTION TEST ABNORMAL [None]
  - TREATMENT NONCOMPLIANCE [None]
